FAERS Safety Report 7455668-2 (Version None)
Quarter: 2011Q2

REPORT INFORMATION
  Report Type: 
  Country: None (occurrence: None)
  Receive Date: 20110503
  Receipt Date: 20110429
  Transmission Date: 20111010
  Serious: Yes (Death, Life-Threatening)
  Sender: FDA-Public Use
  Company Number: CN-GENZYME-FLUD-1001102

PATIENT
  Sex: Male
  Weight: 100 kg

DRUGS (5)
  1. GRANULOCYTE COLONY STIMULATING FACTOR [Suspect]
     Dosage: 400 UG/D, QD
     Route: 042
     Dates: start: 20110331, end: 20110404
  2. CYTARABINE [Suspect]
     Dosage: 4.4 G, BID
     Route: 042
     Dates: start: 20110331, end: 20110404
  3. ITRACONAZOLE [Concomitant]
     Indication: PNEUMONIA FUNGAL
     Dosage: 200 MG, QD
     Route: 042
     Dates: start: 20110223, end: 20110421
  4. MEROPENEM [Concomitant]
     Indication: PNEUMONIA FUNGAL
     Dosage: 2 G, UNK
     Route: 042
     Dates: start: 20110101
  5. FLUDARA [Suspect]
     Dosage: 50 MG, QD
     Route: 042
     Dates: start: 20110331, end: 20110404

REACTIONS (2)
  - CEREBRAL HAEMORRHAGE [None]
  - CARDIO-RESPIRATORY ARREST [None]
